FAERS Safety Report 5751363-6 (Version None)
Quarter: 2008Q2

REPORT INFORMATION
  Report Type: 
  Country: None (occurrence: None)
  Receive Date: 20080528
  Receipt Date: 20080519
  Transmission Date: 20081010
  Serious: Yes (Hospitalization, Disabling)
  Sender: FDA-Public Use
  Company Number: AU-AMGEN-US276158

PATIENT
  Sex: Male

DRUGS (2)
  1. ENBREL [Suspect]
     Indication: ANKYLOSING SPONDYLITIS
     Route: 058
     Dates: start: 20070701
  2. ISONIAZID [Concomitant]
     Dosage: UNKNOWN
     Route: 065
     Dates: start: 20070701, end: 20080101

REACTIONS (12)
  - CHILLS [None]
  - COUGH [None]
  - FATIGUE [None]
  - FEELING COLD [None]
  - HYPERHIDROSIS [None]
  - PAIN [None]
  - PNEUMONIA MYCOPLASMAL [None]
  - PYREXIA [None]
  - SOMNOLENCE [None]
  - UPPER RESPIRATORY TRACT INFECTION [None]
  - VIRAL INFECTION [None]
  - WEIGHT DECREASED [None]
